FAERS Safety Report 24830284 (Version 1)
Quarter: 2025Q1

REPORT INFORMATION
  Report Type: Spontaneous
  Country: IN (occurrence: IN)
  Receive Date: 20250110
  Receipt Date: 20250110
  Transmission Date: 20250409
  Serious: Yes (Life-Threatening, Hospitalization)
  Sender: UCB
  Company Number: IN-UCBSA-2025001087

PATIENT
  Age: 9 Year
  Sex: Male

DRUGS (2)
  1. LEVETIRACETAM [Suspect]
     Active Substance: LEVETIRACETAM
     Indication: Seizure
  2. PHENYTOIN [Suspect]
     Active Substance: PHENYTOIN
     Indication: Seizure

REACTIONS (1)
  - Sensory disturbance [Recovered/Resolved]
